FAERS Safety Report 6203801-2 (Version None)
Quarter: 2009Q2

REPORT INFORMATION
  Report Type: 
  Country: None (occurrence: None)
  Receive Date: 20090527
  Receipt Date: 20090518
  Transmission Date: 20091009
  Serious: Yes (Hospitalization)
  Sender: FDA-Public Use
  Company Number: PHHO2009KR04171

PATIENT
  Sex: Female
  Weight: 49.4 kg

DRUGS (4)
  1. CERTICAN [Suspect]
     Indication: RENAL TRANSPLANT
     Dosage: 0.5 / 0.75 MG DAILY
     Route: 048
     Dates: start: 20090211
  2. NEORAL [Suspect]
     Indication: RENAL TRANSPLANT
     Dosage: UNK
  3. METOCLOPRAMIDE [Concomitant]
     Indication: NAUSEA
     Dosage: UNK
     Dates: start: 20090407, end: 20090427
  4. METOCLOPRAMIDE [Concomitant]
     Indication: VOMITING

REACTIONS (7)
  - DIABETES MELLITUS INADEQUATE CONTROL [None]
  - GASTRITIS [None]
  - HYPERGLYCAEMIA [None]
  - HYPOGLYCAEMIA [None]
  - IMPAIRED GASTRIC EMPTYING [None]
  - REFLUX OESOPHAGITIS [None]
  - TREMOR [None]
